FAERS Safety Report 4755394-4 (Version None)
Quarter: 2005Q3

REPORT INFORMATION
  Report Type: 
  Country: None (occurrence: None)
  Receive Date: 20050826
  Receipt Date: 20050127
  Transmission Date: 20060218
  Serious: Yes (Other)
  Sender: FDA-Public Use
  Company Number: USA-2003-0004987

PATIENT
  Age: 60 Year
  Sex: Female

DRUGS (7)
  1. OXYCONTIN [Suspect]
     Indication: PAIN
     Dosage: 20 MG, NOCTE, ORAL
     Route: 048
     Dates: start: 19990518
  2. LORCET-HD [Concomitant]
  3. CELEBREX [Concomitant]
  4. KLONOPIN [Concomitant]
  5. SOMA [Concomitant]
  6. VALIUM [Concomitant]
  7. NAPRELAN [Concomitant]

REACTIONS (18)
  - BLOOD PRESSURE INCREASED [None]
  - DEPRESSION [None]
  - DIARRHOEA [None]
  - DRUG DEPENDENCE [None]
  - DRUG WITHDRAWAL SYNDROME [None]
  - FEELING ABNORMAL [None]
  - HEADACHE [None]
  - HYPERHIDROSIS [None]
  - INSOMNIA [None]
  - IRRITABILITY [None]
  - MUSCLE CONTRACTIONS INVOLUNTARY [None]
  - NAUSEA [None]
  - NERVOUSNESS [None]
  - SUICIDAL IDEATION [None]
  - TINNITUS [None]
  - TREMOR [None]
  - VISION BLURRED [None]
  - VOMITING [None]
